FAERS Safety Report 8197670-1 (Version None)
Quarter: 2012Q1

REPORT INFORMATION
  Report Type: 
  Country: None (occurrence: None)
  Receive Date: 20120309
  Receipt Date: 20120307
  Transmission Date: 20120608
  Serious: Yes (Other)
  Sender: FDA-Public Use
  Company Number: GB-PFIZER INC-2012061952

PATIENT
  Age: 27 Year
  Sex: Female

DRUGS (4)
  1. NITRAZEPAM [Concomitant]
  2. VARENICLINE TARTRATE [Suspect]
     Dosage: UNK
     Route: 048
     Dates: start: 20120116
  3. DIAZEPAM [Concomitant]
  4. CITALOPRAM [Concomitant]

REACTIONS (3)
  - RASH [None]
  - RASH MACULAR [None]
  - SWELLING FACE [None]
